FAERS Safety Report 7435203-5 (Version None)
Quarter: 2011Q2

REPORT INFORMATION
  Report Type: 
  Country: None (occurrence: None)
  Receive Date: 20110415
  Receipt Date: 20110401
  Transmission Date: 20111010
  Serious: Yes (Other)
  Sender: FDA-Public Use
  Company Number: 2011SP014947

PATIENT
  Age: 50 Year
  Sex: Male

DRUGS (1)
  1. TEMODAL [Suspect]
     Indication: BRAIN NEOPLASM

REACTIONS (2)
  - CONVULSION [None]
  - BLOOD PHOSPHORUS DECREASED [None]
